FAERS Safety Report 8050651-0 (Version None)
Quarter: 2012Q1

REPORT INFORMATION
  Report Type: 
  Country: None (occurrence: None)
  Receive Date: 20120117
  Receipt Date: 20120112
  Transmission Date: 20120608
  Serious: Yes (Death, Hospitalization)
  Sender: FDA-Public Use
  Company Number: US-CELGENEUS-163-21880-12011240

PATIENT
  Age: 73 Year
  Sex: Male

DRUGS (15)
  1. RED BLOOD CELLS [Concomitant]
     Route: 041
  2. PROZAC [Concomitant]
     Route: 065
  3. VICODIN [Concomitant]
     Route: 065
  4. HYDROMORPHONE HCL [Concomitant]
     Route: 065
  5. CLONAZEPAM [Concomitant]
     Route: 065
  6. REVLIMID [Suspect]
     Indication: MULTIPLE MYELOMA
     Dosage: 15 MILLIGRAM
     Route: 048
     Dates: start: 20080701, end: 20110301
  7. TERAZOSIN HCL [Concomitant]
     Route: 065
  8. LASIX [Concomitant]
     Route: 065
  9. ALBUTEROL [Concomitant]
     Route: 065
  10. ATENOLOL [Concomitant]
     Route: 065
  11. INTRAVENOUS FLUIDS [Concomitant]
     Route: 041
  12. MORPHINE [Concomitant]
     Route: 065
  13. IPRATROPIUM BROMIDE [Concomitant]
     Route: 065
  14. DECADRON [Concomitant]
     Route: 065
  15. PLAVIX [Concomitant]
     Route: 065

REACTIONS (6)
  - HYPERCALCAEMIA [None]
  - PANCYTOPENIA [None]
  - CHEST PAIN [None]
  - RENAL FAILURE ACUTE [None]
  - DEATH [None]
  - MENTAL STATUS CHANGES [None]
